FAERS Safety Report 7133912-9 (Version None)
Quarter: 2010Q4

REPORT INFORMATION
  Report Type: 
  Country: None (occurrence: None)
  Receive Date: 20101203
  Receipt Date: 20101124
  Transmission Date: 20110411
  Serious: Yes (Other)
  Sender: FDA-Public Use
  Company Number: US-BAYER-2010-000271

PATIENT

DRUGS (4)
  1. NAPROXEN SODIUM LIQUID GEL CAPSULES [Suspect]
     Indication: PRODUCT USED FOR UNKNOWN INDICATION
     Dosage: 2640 MG, UNK
     Route: 048
  2. NAPROXEN SODIUM LIQUID GEL CAPSULES [Suspect]
     Dosage: 440 MG, UNK
     Route: 048
     Dates: start: 20101123
  3. ALCOHOL [Concomitant]
     Route: 048
  4. ALCOHOL [Concomitant]
     Dosage: UNK
     Route: 048
     Dates: start: 20101123

REACTIONS (3)
  - DRUG ABUSE [None]
  - HANGOVER [None]
  - LOSS OF CONSCIOUSNESS [None]
